FAERS Safety Report 8144219-5 (Version None)
Quarter: 2012Q1

REPORT INFORMATION
  Report Type: 
  Country: None (occurrence: None)
  Receive Date: 20120217
  Receipt Date: 20120214
  Transmission Date: 20120608
  Serious: Yes (Life-Threatening, Hospitalization)
  Sender: FDA-Public Use
  Company Number: US-BAYER-2011-079624

PATIENT
  Age: 20 Year
  Sex: Female

DRUGS (5)
  1. YAZ [Suspect]
  2. DROSPIRENONE AND ETHINYL ESTRADIOL [Suspect]
  3. ANTIOXIDANTS [Concomitant]
     Route: 048
  4. YASMIN [Suspect]
  5. MULTI-VITAMINS [Concomitant]
     Route: 048

REACTIONS (5)
  - INJURY [None]
  - ANHEDONIA [None]
  - DEEP VEIN THROMBOSIS [None]
  - ANXIETY [None]
  - PAIN [None]
